FAERS Safety Report 7009637-7 (Version None)
Quarter: 2010Q3

REPORT INFORMATION
  Report Type: 
  Country: None (occurrence: None)
  Receive Date: 20100903
  Receipt Date: 20100804
  Transmission Date: 20110219
  Serious: No
  Sender: FDA-Public Use
  Company Number: 163-22393-10080382

PATIENT
  Age: 55 Year
  Sex: Female

DRUGS (1)
  1. ISTODAX [Suspect]
     Indication: MYCOSIS FUNGOIDES
     Dosage: INTRAVENOUS
     Route: 042
     Dates: start: 20100401

REACTIONS (1)
  - DYSGEUSIA [None]
